FAERS Safety Report 7912006-6 (Version None)
Quarter: 2011Q4

REPORT INFORMATION
  Report Type: 
  Country: None (occurrence: None)
  Receive Date: 20111114
  Receipt Date: 20111108
  Transmission Date: 20120403
  Serious: Yes (Hospitalization)
  Sender: FDA-Public Use
  Company Number: GB-PERRIGO-11GB009671

PATIENT
  Age: 59 Year
  Sex: Male

DRUGS (2)
  1. ANADIN EXTRA [Suspect]
     Indication: PAIN
     Dosage: 2 DF, BID
     Route: 048
  2. NAPROXEN SODIUM [Suspect]
     Indication: PAIN
     Dosage: 500 MG, BID
     Route: 048
     Dates: end: 20111027

REACTIONS (2)
  - DUODENAL ULCER [None]
  - MELAENA [None]
